FAERS Safety Report 8906159 (Version 3)
Quarter: 2013Q1

REPORT INFORMATION
  Report Type: Spontaneous
  Country: US (occurrence: US)
  Receive Date: 20121112
  Receipt Date: 20130117
  Transmission Date: 20140127
  Serious: Yes (Other)
  Sender: FDA-Public Use
  Company Number: US-009507513-1211USA003305

PATIENT
  Age: 81 None
  Sex: Female

DRUGS (4)
  1. COSOPT [Suspect]
     Indication: INTRAOCULAR PRESSURE TEST ABNORMAL
     Dosage: UNK
     Route: 047
     Dates: end: 20121106
  2. COSOPT [Suspect]
     Indication: GLAUCOMA
  3. COMBIGAN [Suspect]
     Dosage: UNK
     Route: 047
     Dates: start: 2011
  4. ALPHAGAN [Concomitant]
     Dosage: UNK
     Dates: end: 2011

REACTIONS (10)
  - Eyelid ptosis [Recovered/Resolved]
  - Cataract operation [Recovered/Resolved]
  - Feeling abnormal [Recovered/Resolved]
  - Lacrimation increased [Recovered/Resolved]
  - Vision blurred [Recovered/Resolved]
  - Headache [Recovered/Resolved]
  - Nausea [Recovered/Resolved]
  - Glaucoma surgery [Recovered/Resolved]
  - Conjunctival hyperaemia [Recovered/Resolved]
  - Conjunctivitis [Recovered/Resolved]
